FAERS Safety Report 7068826-6 (Version None)
Quarter: 2010Q4

REPORT INFORMATION
  Report Type: 
  Country: None (occurrence: None)
  Receive Date: 20101028
  Receipt Date: 20101019
  Transmission Date: 20110411
  Serious: Yes (Hospitalization, Other)
  Sender: FDA-Public Use
  Company Number: CHPA2010BR16441

PATIENT
  Age: 18 Year
  Sex: Female
  Weight: 52.154 kg

DRUGS (10)
  1. TRIMEDAL (NCH) [Suspect]
     Dosage: 12 DF, ONCE/SINGLE
     Route: 048
     Dates: start: 20101018, end: 20101018
  2. PARACETAMOL (NGX) [Suspect]
     Dosage: 5000 MG, ONCE/SINGLE
     Route: 048
     Dates: start: 20101018, end: 20101018
  3. AMOXICILLIN [Suspect]
     Dosage: UNK, UNK
     Route: 048
     Dates: start: 20101018, end: 20101018
  4. CODEINE W/PARACETAMOL [Suspect]
     Dosage: UNK, UNK
     Route: 048
     Dates: start: 20101018, end: 20101018
  5. METOCLOPRAMIDE [Suspect]
     Dosage: 3 DF, ONCE/SINGLE
     Route: 048
     Dates: start: 20101018, end: 20101018
  6. DIMENHYDRINATE [Suspect]
     Dosage: 8 DF, ONCE/SINGLE
     Route: 048
     Dates: start: 20101018, end: 20101018
  7. NIMESULIDE (NGX) [Suspect]
     Dosage: 2 DF, ONCE/SINGLE
     Route: 048
     Dates: start: 20101018, end: 20101018
  8. DEXAMETHASONE (NGX) [Suspect]
     Dosage: 2 DF, ONCE/SINGLE
     Route: 048
     Dates: start: 20101018, end: 20101018
  9. DRUG THERAPY NOS [Suspect]
     Dosage: 7 DF, ONCE/SINGLE
     Route: 048
     Dates: start: 20101018, end: 20101018
  10. ALCOHOL [Suspect]
     Dosage: UNK, UNK
     Route: 048
     Dates: start: 20101018, end: 20101018

REACTIONS (4)
  - AGITATION [None]
  - INCORRECT DOSE ADMINISTERED [None]
  - TACHYCARDIA [None]
  - VOMITING [None]
